FAERS Safety Report 10930497 (Version 2)
Quarter: 2015Q2

REPORT INFORMATION
  Report Type: Spontaneous
  Country: US (occurrence: US)
  Receive Date: 20150319
  Receipt Date: 20150424
  Transmission Date: 20150821
  Serious: No
  Sender: FDA-Public Use
  Company Number: US-GLAXOSMITHKLINE-US2015033140

PATIENT
  Sex: Female

DRUGS (9)
  1. LIDOCAINE. [Concomitant]
     Active Substance: LIDOCAINE
  2. LORAZEPAM. [Concomitant]
     Active Substance: LORAZEPAM
  3. OMEPRAZOLE. [Concomitant]
     Active Substance: OMEPRAZOLE
  4. TYLENOL WITH CODEINE [Concomitant]
     Active Substance: ACETAMINOPHEN\CODEINE PHOSPHATE
  5. ADVAIR DISKUS [Suspect]
     Active Substance: FLUTICASONE PROPIONATE\SALMETEROL XINAFOATE
     Indication: ASTHMA
     Dosage: 1 PUFF(S), BID
     Route: 055
  6. LISINOPRIL-HCTZ [Concomitant]
     Active Substance: HYDROCHLOROTHIAZIDE\LISINOPRIL
  7. DILT XR [Concomitant]
  8. PRAVASTATIN [Concomitant]
     Active Substance: PRAVASTATIN\PRAVASTATIN SODIUM
  9. WARFARIN [Concomitant]
     Active Substance: WARFARIN

REACTIONS (10)
  - Fatigue [Recovering/Resolving]
  - Product quality issue [Unknown]
  - Cardiomegaly [Unknown]
  - Asthenia [Unknown]
  - Dyspnoea [Recovering/Resolving]
  - Wheezing [Recovering/Resolving]
  - Chest discomfort [Recovering/Resolving]
  - Asthma [Unknown]
  - Malaise [Unknown]
  - Emergency care examination [Unknown]
